FAERS Safety Report 6794567-6 (Version None)
Quarter: 2010Q2

REPORT INFORMATION
  Report Type: 
  Country: None (occurrence: None)
  Receive Date: 20100625
  Receipt Date: 20100611
  Transmission Date: 20101027
  Serious: Yes (Other)
  Sender: FDA-Public Use
  Company Number: RU-RANBAXY-2010R3-34588

PATIENT

DRUGS (1)
  1. OMEPRAZOLE+CLARITHROMYCIN+AMOXICILLIN [Suspect]
     Indication: GASTRIC ULCER
     Dosage: (40+1000+2000)MG
     Route: 048
     Dates: start: 20100519, end: 20100522

REACTIONS (1)
  - ANGIOEDEMA [None]
